FAERS Safety Report 18702273 (Version 2)
Quarter: 2021Q1

REPORT INFORMATION
  Report Type: Report from Study
  Country: CA (occurrence: CA)
  Receive Date: 20210105
  Receipt Date: 20210122
  Transmission Date: 20210419
  Serious: Yes (Other)
  Sender: FDA-Public Use
  Company Number: CA-TAKEDA-2021TUS000243

PATIENT
  Age: 39 Year
  Sex: Female

DRUGS (6)
  1. VALTREX [Concomitant]
     Active Substance: VALACYCLOVIR HYDROCHLORIDE
     Dosage: UNK
  2. PREGABALIN. [Concomitant]
     Active Substance: PREGABALIN
     Dosage: UNK
  3. VEDOLIZUMAB [Suspect]
     Active Substance: VEDOLIZUMAB
     Dosage: 300 MILLIGRAM
     Route: 042
  4. URSODIOL. [Concomitant]
     Active Substance: URSODIOL
     Indication: LIVER DISORDER
     Dosage: UNK
  5. CELEXA [CELECOXIB] [Concomitant]
     Active Substance: CELECOXIB
     Dosage: UNK
  6. VEDOLIZUMAB [Suspect]
     Active Substance: VEDOLIZUMAB
     Indication: CROHN^S DISEASE
     Dosage: 300 MILLIGRAM
     Route: 042
     Dates: start: 20200729

REACTIONS (5)
  - Decreased appetite [Unknown]
  - Cholangitis infective [Unknown]
  - Hepatic pain [Not Recovered/Not Resolved]
  - Arthralgia [Unknown]
  - Poor quality sleep [Unknown]

NARRATIVE: CASE EVENT DATE: 20201221
